FAERS Safety Report 7142752-6 (Version None)
Quarter: 2010Q4

REPORT INFORMATION
  Report Type: 
  Country: None (occurrence: None)
  Receive Date: 20101207
  Receipt Date: 20101124
  Transmission Date: 20110411
  Serious: Yes (Hospitalization, Other)
  Sender: FDA-Public Use
  Company Number: PHHY2010US54715

PATIENT
  Sex: Female

DRUGS (2)
  1. EXJADE [Suspect]
     Indication: SICKLE CELL ANAEMIA
     Dosage: 500 MG, BID
     Route: 048
  2. EXJADE [Suspect]

REACTIONS (9)
  - CHILLS [None]
  - COUGH [None]
  - FACE OEDEMA [None]
  - FEELING ABNORMAL [None]
  - NAUSEA [None]
  - PNEUMONIA [None]
  - POOR QUALITY SLEEP [None]
  - THROMBOSIS [None]
  - VOMITING [None]
